FAERS Safety Report 10715092 (Version 1)
Quarter: 2015Q1

REPORT INFORMATION
  Report Type: Spontaneous
  Country: US (occurrence: US)
  Receive Date: 20150115
  Receipt Date: 20150115
  Transmission Date: 20150721
  Serious: Yes (Death, Other)
  Sender: FDA-Public Use
  Company Number: US-GLAXOSMITHKLINE-US2015GSK003105

PATIENT
  Age: 56 Year
  Sex: Male

DRUGS (7)
  1. SERTRALINE [Suspect]
     Active Substance: SERTRALINE HYDROCHLORIDE
     Route: 048
  2. AMLODIPINE [Suspect]
     Active Substance: AMLODIPINE BESYLATE
     Route: 048
  3. SIMVASTATIN. [Suspect]
     Active Substance: SIMVASTATIN
     Route: 048
  4. BUPROPION [Suspect]
     Active Substance: BUPROPION
     Route: 048
  5. CARVEDILOL. [Suspect]
     Active Substance: CARVEDILOL
     Route: 048
  6. ETHANOL [Suspect]
     Active Substance: ALCOHOL
     Route: 048
  7. DOXEPIN [Suspect]
     Active Substance: DOXEPIN
     Route: 048

REACTIONS (1)
  - Death [Fatal]
